FAERS Safety Report 8880077 (Version 1)
Quarter: 2012Q4

REPORT INFORMATION
  Report Type: 
  Country: US (occurrence: US)
  Receive Date: 20121031
  Receipt Date: 20121031
  Transmission Date: 20130627
  Serious: Yes (Other)
  Sender: FDA-Public Use
  Company Number: US-BAYER-2012-110796

PATIENT
  Sex: Male

DRUGS (1)
  1. RID SHAMPOO [Suspect]
     Indication: HEAD LICE
     Route: 061

REACTIONS (1)
  - Haemorrhage [None]
